FAERS Safety Report 4769062-6 (Version None)
Quarter: 2005Q3

REPORT INFORMATION
  Report Type: 
  Country: None (occurrence: None)
  Receive Date: 20050914
  Receipt Date: 20050908
  Transmission Date: 20060218
  Serious: Yes (Other)
  Sender: FDA-Public Use
  Company Number: 002099

PATIENT
  Age: 68 Year
  Sex: Female

DRUGS (2)
  1. MEDROXYPROGESTERONE ACETATE [Suspect]
     Dosage: ORAL
     Route: 048
     Dates: start: 20011113, end: 20030708
  2. PREMARIN [Suspect]
     Dosage: ORAL
     Route: 048
     Dates: start: 20011228, end: 20030714

REACTIONS (3)
  - BREAST CANCER [None]
  - CEREBROVASCULAR ACCIDENT [None]
  - METASTASES TO LYMPH NODES [None]
